FAERS Safety Report 19124354 (Version 1)
Quarter: 2021Q2

REPORT INFORMATION
  Report Type: Report from Study
  Country: JP (occurrence: JP)
  Receive Date: 20210412
  Receipt Date: 20210412
  Transmission Date: 20210717
  Serious: Yes (Death, Hospitalization)
  Sender: FDA-Public Use
  Company Number: JP-CELGENEUS-JPN-20210308312

PATIENT
  Age: 76 Year
  Sex: Male

DRUGS (77)
  1. PALONOSETRON HYDROCHLORIDE. [Concomitant]
     Active Substance: PALONOSETRON HYDROCHLORIDE
     Dosage: 0.75 MILLIGRAM
     Route: 065
     Dates: start: 20190805, end: 20190805
  2. PALONOSETRON HYDROCHLORIDE. [Concomitant]
     Active Substance: PALONOSETRON HYDROCHLORIDE
     Dosage: 0.75 MILLIGRAM
     Route: 065
     Dates: start: 20200706, end: 20200706
  3. GRANISETRON HCL [Concomitant]
     Active Substance: GRANISETRON HYDROCHLORIDE
     Dosage: 1 MILLIGRAM
     Route: 065
     Dates: start: 20190625, end: 20190702
  4. GRANISETRON HCL [Concomitant]
     Active Substance: GRANISETRON HYDROCHLORIDE
     Dosage: 1 MILLIGRAM
     Route: 065
     Dates: start: 20200218, end: 20200226
  5. GRANISETRON HCL [Concomitant]
     Active Substance: GRANISETRON HYDROCHLORIDE
     Dosage: 1 MILLIGRAM
     Route: 065
     Dates: start: 20200609, end: 20200616
  6. GRANISETRON HCL [Concomitant]
     Active Substance: GRANISETRON HYDROCHLORIDE
     Dosage: 1 MILLIGRAM
     Route: 065
     Dates: start: 20210323
  7. ESOMEPRAZOLE MAGNESIUM HYDRATE [Concomitant]
     Active Substance: ESOMEPRAZOLE MAGNESIUM
     Indication: PRODUCT USED FOR UNKNOWN INDICATION
     Dosage: 20 MILLIGRAM
     Route: 065
     Dates: start: 20190607, end: 20190607
  8. ZOLPIDEM TARTRATE. [Concomitant]
     Active Substance: ZOLPIDEM TARTRATE
     Indication: PRODUCT USED FOR UNKNOWN INDICATION
     Route: 065
     Dates: end: 20200605
  9. DEFERASIROX. [Concomitant]
     Active Substance: DEFERASIROX
     Indication: PRODUCT USED FOR UNKNOWN INDICATION
     Dosage: 360 MILLIGRAM
     Route: 065
     Dates: start: 20190712, end: 20190724
  10. VIDAZA [Suspect]
     Active Substance: AZACITIDINE
     Indication: MYELODYSPLASTIC SYNDROME
     Route: 042
  11. PALONOSETRON HYDROCHLORIDE. [Concomitant]
     Active Substance: PALONOSETRON HYDROCHLORIDE
     Indication: PRODUCT USED FOR UNKNOWN INDICATION
     Dosage: 0.75 MILLIGRAM
     Route: 065
     Dates: start: 20190513, end: 20190513
  12. PALONOSETRON HYDROCHLORIDE. [Concomitant]
     Active Substance: PALONOSETRON HYDROCHLORIDE
     Dosage: 0.75 MILLIGRAM
     Route: 065
     Dates: start: 20191209, end: 20191209
  13. PALONOSETRON HYDROCHLORIDE. [Concomitant]
     Active Substance: PALONOSETRON HYDROCHLORIDE
     Dosage: 0.75 MILLIGRAM
     Route: 065
     Dates: start: 20200217, end: 20200217
  14. PALONOSETRON HYDROCHLORIDE. [Concomitant]
     Active Substance: PALONOSETRON HYDROCHLORIDE
     Dosage: 0.75 MILLIGRAM
     Route: 065
     Dates: start: 20200928, end: 20200928
  15. GRANISETRON HCL [Concomitant]
     Active Substance: GRANISETRON HYDROCHLORIDE
     Dosage: 1 MILLIGRAM
     Route: 065
     Dates: start: 20200414, end: 20200422
  16. GRANISETRON HCL [Concomitant]
     Active Substance: GRANISETRON HYDROCHLORIDE
     Dosage: 1 MILLIGRAM
     Route: 065
     Dates: start: 20200929, end: 20201006
  17. GRANISETRON HCL [Concomitant]
     Active Substance: GRANISETRON HYDROCHLORIDE
     Dosage: 1 MILLIGRAM
     Route: 065
     Dates: start: 20201027, end: 20201104
  18. NADIFLOXACIN [Concomitant]
     Active Substance: NADIFLOXACIN
     Indication: PRODUCT USED FOR UNKNOWN INDICATION
     Dosage: 2 DOSAGE FORM
     Route: 065
     Dates: start: 20190712, end: 20190719
  19. DIFLUPREDNATE [Concomitant]
     Active Substance: DIFLUPREDNATE
     Indication: PRODUCT USED FOR UNKNOWN INDICATION
     Dosage: 2 DOSAGE FROM
     Route: 065
     Dates: start: 20190712, end: 20190719
  20. CEFTRIAXONE SODIUM HYDRATE [Concomitant]
     Active Substance: CEFTRIAXONE SODIUM
     Indication: PRODUCT USED FOR UNKNOWN INDICATION
     Route: 065
     Dates: start: 20190724, end: 20190724
  21. LOXOPROFEN SODIUM HYDRATE [Concomitant]
     Active Substance: LOXOPROFEN SODIUM DIHYDRATE
     Route: 065
     Dates: start: 20200121, end: 20200213
  22. AMLODIPINE BESYLATE. [Concomitant]
     Active Substance: AMLODIPINE BESYLATE
     Indication: PRODUCT USED FOR UNKNOWN INDICATION
     Dosage: 5 MILLIGRAM
     Route: 065
     Dates: start: 20191206
  23. DEXTROMETHORPHAN HYDROBROMIDE HYDRATE [Concomitant]
     Active Substance: DEXTROMETHORPHAN HYDROBROMIDE
     Indication: PRODUCT USED FOR UNKNOWN INDICATION
     Dosage: 45 MILLIGRAM
     Route: 065
     Dates: start: 20200310, end: 20200313
  24. SODIUM PICOSULFATE HYDRATE [Concomitant]
     Active Substance: SODIUM PICOSULFATE
     Indication: PRODUCT USED FOR UNKNOWN INDICATION
     Route: 065
     Dates: start: 20200422, end: 20200508
  25. PALONOSETRON HYDROCHLORIDE. [Concomitant]
     Active Substance: PALONOSETRON HYDROCHLORIDE
     Dosage: 0.75 MILLIGRAM
     Route: 065
     Dates: start: 20191111, end: 20191111
  26. PALONOSETRON HYDROCHLORIDE. [Concomitant]
     Active Substance: PALONOSETRON HYDROCHLORIDE
     Dosage: 0.75 MILLIGRAM
     Route: 065
     Dates: start: 20200316, end: 20200316
  27. PALONOSETRON HYDROCHLORIDE. [Concomitant]
     Active Substance: PALONOSETRON HYDROCHLORIDE
     Dosage: 0.75 MILLIGRAM
     Route: 065
     Dates: start: 20200608, end: 20200608
  28. PALONOSETRON HYDROCHLORIDE. [Concomitant]
     Active Substance: PALONOSETRON HYDROCHLORIDE
     Dosage: 0.75 MILLIGRAM
     Route: 065
     Dates: start: 20210322, end: 20210322
  29. GRANISETRON HCL [Concomitant]
     Active Substance: GRANISETRON HYDROCHLORIDE
     Dosage: 1 MILLIGRAM
     Route: 065
     Dates: start: 20200115, end: 20200122
  30. GRANISETRON HCL [Concomitant]
     Active Substance: GRANISETRON HYDROCHLORIDE
     Dosage: 1 MILLIGRAM
     Route: 065
     Dates: start: 20201201, end: 20201208
  31. GRANISETRON HCL [Concomitant]
     Active Substance: GRANISETRON HYDROCHLORIDE
     Dosage: 1 MILLIGRAM
     Route: 065
     Dates: start: 20210210, end: 20210218
  32. LEVOFLOXACIN HEMIHYDRATE [Concomitant]
     Active Substance: LEVOFLOXACIN
     Dosage: 500 MILLIGRAM
     Route: 065
     Dates: start: 20210104, end: 20210108
  33. PALONOSETRON HYDROCHLORIDE. [Concomitant]
     Active Substance: PALONOSETRON HYDROCHLORIDE
     Dosage: 0.75 MILLIGRAM
     Route: 065
     Dates: start: 20201130, end: 20201130
  34. GRANISETRON HCL [Concomitant]
     Active Substance: GRANISETRON HYDROCHLORIDE
     Dosage: 1 MILLIGRAM
     Route: 065
     Dates: start: 20190806, end: 20190814
  35. GRANISETRON HCL [Concomitant]
     Active Substance: GRANISETRON HYDROCHLORIDE
     Dosage: 1 MILLIGRAM
     Route: 065
     Dates: start: 20200317, end: 20200325
  36. GRANISETRON HCL [Concomitant]
     Active Substance: GRANISETRON HYDROCHLORIDE
     Dosage: 1 MILLIGRAM
     Route: 065
     Dates: start: 20200512, end: 20200519
  37. ITRACONAZOLE. [Concomitant]
     Active Substance: ITRACONAZOLE
     Indication: PRODUCT USED FOR UNKNOWN INDICATION
     Dosage: 200 MILLIGRAM
     Route: 065
     Dates: start: 20190518
  38. LEVOFLOXACIN HEMIHYDRATE [Concomitant]
     Active Substance: LEVOFLOXACIN
     Dosage: 500 MILLIGRAM
     Route: 065
     Dates: start: 20210319
  39. LIDOCAINE. [Concomitant]
     Active Substance: LIDOCAINE
     Indication: PRODUCT USED FOR UNKNOWN INDICATION
     Dosage: 4.8 GRAM
     Route: 065
     Dates: start: 20201106, end: 20201203
  40. PEVONEDISTAT [Concomitant]
     Active Substance: PEVONEDISTAT
     Indication: MYELODYSPLASTIC SYNDROME
     Route: 042
  41. PALONOSETRON HYDROCHLORIDE. [Concomitant]
     Active Substance: PALONOSETRON HYDROCHLORIDE
     Dosage: 0.75 MILLIGRAM
     Route: 065
     Dates: start: 20200217, end: 20200217
  42. PALONOSETRON HYDROCHLORIDE. [Concomitant]
     Active Substance: PALONOSETRON HYDROCHLORIDE
     Dosage: 0.75 MILLIGRAM
     Route: 065
     Dates: start: 20200413, end: 20200413
  43. PALONOSETRON HYDROCHLORIDE. [Concomitant]
     Active Substance: PALONOSETRON HYDROCHLORIDE
     Dosage: 0.75 MILLIGRAM
     Route: 065
     Dates: start: 20201026, end: 20201026
  44. PALONOSETRON HYDROCHLORIDE. [Concomitant]
     Active Substance: PALONOSETRON HYDROCHLORIDE
     Dosage: 0.75 MILLIGRAM
     Route: 065
     Dates: start: 20210112, end: 20210112
  45. DEXAMETHASONE. [Concomitant]
     Active Substance: DEXAMETHASONE
     Indication: PRODUCT USED FOR UNKNOWN INDICATION
     Dosage: 2 DOSAGE FORM
     Route: 065
     Dates: start: 20190712, end: 20190719
  46. VONOPRAZAN FUMARATE [Concomitant]
     Active Substance: VONOPRAZAN FUMARATE
     Indication: PRODUCT USED FOR UNKNOWN INDICATION
     Dosage: 10 MILLIGRAM
     Route: 065
     Dates: start: 20190719, end: 20190809
  47. ENALAPRIL MALEATE. [Concomitant]
     Active Substance: ENALAPRIL MALEATE
     Indication: PRODUCT USED FOR UNKNOWN INDICATION
     Dosage: 5 MILLIGRAM
     Route: 065
     Dates: start: 20190727
  48. LOXOPROFEN SODIUM HYDRATE [Concomitant]
     Active Substance: LOXOPROFEN SODIUM DIHYDRATE
     Indication: PRODUCT USED FOR UNKNOWN INDICATION
     Dosage: 50 MILLIGRAM
     Route: 065
     Dates: start: 20190726, end: 20190802
  49. LOXOPROFEN SODIUM HYDRATE [Concomitant]
     Active Substance: LOXOPROFEN SODIUM DIHYDRATE
     Dosage: 100 MILLIGRAM
     Route: 065
     Dates: start: 20190812
  50. MECOBALAMIN [Concomitant]
     Active Substance: METHYLCOBALAMIN
     Indication: PRODUCT USED FOR UNKNOWN INDICATION
     Dosage: 1500 MICROGRAM
     Route: 065
     Dates: start: 20190823, end: 20200313
  51. ATENOLOL. [Concomitant]
     Active Substance: ATENOLOL
     Indication: PRODUCT USED FOR UNKNOWN INDICATION
     Route: 065
  52. PALONOSETRON HYDROCHLORIDE. [Concomitant]
     Active Substance: PALONOSETRON HYDROCHLORIDE
     Dosage: 0.75 MILLIGRAM
     Route: 065
     Dates: start: 20200511, end: 20200511
  53. GRANISETRON HCL [Concomitant]
     Active Substance: GRANISETRON HYDROCHLORIDE
     Dosage: 1 MILLIGRAM
     Route: 065
     Dates: start: 20191210, end: 20191217
  54. GRANISETRON HCL [Concomitant]
     Active Substance: GRANISETRON HYDROCHLORIDE
     Dosage: 1 MILLIGRAM
     Route: 065
     Dates: start: 20200707, end: 20200714
  55. GRANISETRON HCL [Concomitant]
     Active Substance: GRANISETRON HYDROCHLORIDE
     Dosage: 1 MILLIGRAM
     Route: 065
     Dates: start: 20210113, end: 20210120
  56. MAGNESIUM OXIDE. [Concomitant]
     Active Substance: MAGNESIUM OXIDE
     Indication: PRODUCT USED FOR UNKNOWN INDICATION
     Dosage: 1500 MILLIGRAM
     Route: 065
     Dates: start: 20190515, end: 20190621
  57. MAGNESIUM OXIDE. [Concomitant]
     Active Substance: MAGNESIUM OXIDE
     Dosage: 1500 MILLIGRAM
     Route: 065
     Dates: start: 20200816
  58. SODIUM GUALENATE HYDRATE [Concomitant]
     Active Substance: SODIUM GUALENATE MONOHYDRATE
     Indication: PRODUCT USED FOR UNKNOWN INDICATION
     Route: 065
     Dates: start: 20190724, end: 20190913
  59. LACTEC?G [Concomitant]
     Indication: PRODUCT USED FOR UNKNOWN INDICATION
     Dosage: 500 MILLILITER
     Route: 065
     Dates: start: 20190724, end: 20190724
  60. PREGABALIN. [Concomitant]
     Active Substance: PREGABALIN
     Indication: PRODUCT USED FOR UNKNOWN INDICATION
     Dosage: 150 MILLIGRAM
     Route: 065
     Dates: start: 20190823
  61. TAMSULOSIN HYDROCHLORIDE. [Concomitant]
     Active Substance: TAMSULOSIN HYDROCHLORIDE
     Indication: PRODUCT USED FOR UNKNOWN INDICATION
     Dosage: 0.2 MILLIGRAM
     Route: 065
     Dates: start: 20210122
  62. ALACEPRIL [Concomitant]
     Active Substance: ALACEPRIL
     Indication: PRODUCT USED FOR UNKNOWN INDICATION
     Route: 065
     Dates: end: 20190726
  63. PALONOSETRON HYDROCHLORIDE. [Concomitant]
     Active Substance: PALONOSETRON HYDROCHLORIDE
     Dosage: 0.75 MILLIGRAM
     Route: 065
     Dates: start: 20190909, end: 20190909
  64. PALONOSETRON HYDROCHLORIDE. [Concomitant]
     Active Substance: PALONOSETRON HYDROCHLORIDE
     Dosage: 0.75 MILLIGRAM
     Route: 065
     Dates: start: 20190114, end: 20190114
  65. PALONOSETRON HYDROCHLORIDE. [Concomitant]
     Active Substance: PALONOSETRON HYDROCHLORIDE
     Dosage: 0.75 MILLIGRAM
     Route: 065
     Dates: start: 20210209, end: 20210209
  66. GRANISETRON HCL [Concomitant]
     Active Substance: GRANISETRON HYDROCHLORIDE
     Indication: PRODUCT USED FOR UNKNOWN INDICATION
     Dosage: 1 MILLIGRAM
     Route: 065
     Dates: start: 20190514, end: 20190521
  67. GRANISETRON HCL [Concomitant]
     Active Substance: GRANISETRON HYDROCHLORIDE
     Dosage: 1 MILLIGRAM
     Route: 065
     Dates: start: 20191112, end: 20191119
  68. GRANISETRON HCL [Concomitant]
     Active Substance: GRANISETRON HYDROCHLORIDE
     Dosage: 1 MILLIGRAM
     Route: 065
     Dates: start: 20200804, end: 20200812
  69. METOCLOPRAMIDE. [Concomitant]
     Active Substance: METOCLOPRAMIDE
     Indication: PRODUCT USED FOR UNKNOWN INDICATION
     Route: 065
     Dates: start: 20190517, end: 20190524
  70. SENNOSIDE [Concomitant]
     Active Substance: SENNOSIDES
     Indication: PRODUCT USED FOR UNKNOWN INDICATION
     Route: 065
     Dates: start: 20190517
  71. PALONOSETRON HYDROCHLORIDE. [Concomitant]
     Active Substance: PALONOSETRON HYDROCHLORIDE
     Dosage: 0.75 MILLIGRAM
     Route: 065
     Dates: start: 20190624, end: 20190624
  72. PALONOSETRON HYDROCHLORIDE. [Concomitant]
     Active Substance: PALONOSETRON HYDROCHLORIDE
     Dosage: 0.75 MILLIGRAM
     Route: 065
     Dates: start: 20200803, end: 20200803
  73. PALONOSETRON HYDROCHLORIDE. [Concomitant]
     Active Substance: PALONOSETRON HYDROCHLORIDE
     Dosage: 0.75 MILLIGRAM
     Route: 065
     Dates: start: 20200831, end: 20200831
  74. GRANISETRON HCL [Concomitant]
     Active Substance: GRANISETRON HYDROCHLORIDE
     Dosage: 1 MILLIGRAM
     Route: 065
     Dates: start: 20200901, end: 20200908
  75. LEVOFLOXACIN HEMIHYDRATE [Concomitant]
     Active Substance: LEVOFLOXACIN
     Indication: PRODUCT USED FOR UNKNOWN INDICATION
     Dosage: 500 MILLIGRAM
     Route: 065
     Dates: start: 20190712, end: 20190719
  76. DEXTROMETHORPHAN HYDROBROMIDE HYDRATE [Concomitant]
     Active Substance: DEXTROMETHORPHAN HYDROBROMIDE
     Dosage: 45 MILLIGRAM
     Route: 065
     Dates: start: 20210104, end: 20210108
  77. TRIBENOSIDE [Concomitant]
     Active Substance: TRIBENOSIDE
     Indication: PRODUCT USED FOR UNKNOWN INDICATION
     Dosage: 4.8 GRAM
     Route: 065
     Dates: start: 20201106, end: 20201203

REACTIONS (2)
  - Gastrointestinal haemorrhage [Not Recovered/Not Resolved]
  - Pneumonia [Fatal]

NARRATIVE: CASE EVENT DATE: 20210322
